FAERS Safety Report 8777398 (Version 1)
Quarter: 2012Q4

REPORT INFORMATION
  Report Type: 
  Country: BR (occurrence: BR)
  Receive Date: 20120911
  Receipt Date: 20120911
  Transmission Date: 20130627
  Serious: Yes (Other)
  Sender: FDA-Public Use
  Company Number: BR-BRISTOL-MYERS SQUIBB COMPANY-16928681

PATIENT
  Age: 68 Year
  Sex: Female

DRUGS (6)
  1. AVAPRO [Suspect]
     Indication: HYPERTENSIVE HEART DISEASE
     Dosage: 1df=2 tabs
Aprozide 150/12.5mg tabs
     Route: 048
     Dates: start: 1995
  2. SOTALOL HCL TABS [Concomitant]
     Dosage: 1df=1 tab
  3. COLLYRIUM [Concomitant]
     Dosage: Route:eye
     Route: 047
  4. DAFLON [Concomitant]
     Dosage: 1df=2 tabs
500mg tabs
  5. GINKGO BILOBA [Concomitant]
     Dosage: 1df=1 tab
80mg tabs
  6. AMLODIPINE [Concomitant]
     Dosage: 1df=1 tab
5mg tabs

REACTIONS (2)
  - Cataract [Unknown]
  - Glaucoma [Unknown]
